FAERS Safety Report 8413556-9 (Version None)
Quarter: 2012Q2

REPORT INFORMATION
  Report Type: 
  Country: None (occurrence: None)
  Receive Date: 20120605
  Receipt Date: 20120525
  Transmission Date: 20120825
  Serious: Yes (Hospitalization)
  Sender: FDA-Public Use
  Company Number: FR-GLAXOSMITHKLINE-B0803985A

PATIENT
  Sex: Male
  Weight: 52 kg

DRUGS (7)
  1. PYOSTACINE [Concomitant]
     Dosage: 1G TWICE PER DAY
     Route: 048
     Dates: start: 20120331, end: 20120410
  2. DOMPERIDONE [Concomitant]
     Dosage: 20MG THREE TIMES PER DAY
     Route: 048
     Dates: start: 20120411
  3. TRIMEBUTINE [Concomitant]
     Dosage: 200MG THREE TIMES PER DAY
     Route: 048
     Dates: start: 20120411
  4. DESLORATADINE [Concomitant]
     Dosage: 5MG TWICE PER DAY
     Route: 048
     Dates: start: 20120330
  5. ACETAMINOPHEN AND CODEINE PHOSPHATE [Concomitant]
     Route: 048
     Dates: start: 20100101
  6. ARIXTRA [Suspect]
     Indication: PRODUCT USED FOR UNKNOWN INDICATION
     Dosage: 7.5MG PER DAY
     Dates: start: 20120331, end: 20120414
  7. ALTIZIDE + SPIRONOLACTONE [Concomitant]
     Dosage: 1UNIT IN THE MORNING
     Route: 048
     Dates: start: 20111201

REACTIONS (14)
  - VOMITING [None]
  - GENERAL PHYSICAL HEALTH DETERIORATION [None]
  - GASTRIC ULCER HAEMORRHAGE [None]
  - DIZZINESS [None]
  - MELAENA [None]
  - ARTHRITIS [None]
  - DUODENAL ULCER [None]
  - HIATUS HERNIA [None]
  - HAEMATURIA [None]
  - ASTHENIA [None]
  - PAIN IN EXTREMITY [None]
  - ANAEMIA [None]
  - ABDOMINAL PAIN [None]
  - NAUSEA [None]
